FAERS Safety Report 21188320 (Version 3)
Quarter: 2024Q1

REPORT INFORMATION
  Report Type: Spontaneous
  Country: CZ (occurrence: CZ)
  Receive Date: 20220809
  Receipt Date: 20240313
  Transmission Date: 20240410
  Serious: Yes (Other)
  Sender: FDA-Public Use
  Company Number: CZ-TEVA-2022-CZ-2056399

PATIENT
  Age: 38 Year
  Sex: Female

DRUGS (13)
  1. PREGABALIN [Suspect]
     Active Substance: PREGABALIN
     Indication: Migraine prophylaxis
     Dosage: 6 MONTHS
     Route: 065
  2. METOPROLOL [Suspect]
     Active Substance: METOPROLOL
     Indication: Migraine prophylaxis
     Dosage: 100 MILLIGRAM DAILY; 8 MONTHS
     Route: 065
  3. TOPIRAMATE [Suspect]
     Active Substance: TOPIRAMATE
     Indication: Migraine prophylaxis
     Dosage: 25 MILLIGRAM DAILY; DURATION  3 MONTHS
     Route: 065
  4. AMITRIPTYLINE [Suspect]
     Active Substance: AMITRIPTYLINE
     Indication: Migraine prophylaxis
     Dosage: 25 MILLIGRAM DAILY; 3 MONTHS
     Route: 065
  5. VALPROIC ACID [Suspect]
     Active Substance: VALPROIC ACID
     Indication: Migraine prophylaxis
     Dosage: 300 MILLIGRAM DAILY; 3 MONTHS
     Route: 065
  6. ONABOTULINUMTOXINA [Suspect]
     Active Substance: ONABOTULINUMTOXINA
     Indication: Migraine prophylaxis
     Route: 065
  7. VENLAFAXINE [Suspect]
     Active Substance: VENLAFAXINE HYDROCHLORIDE
     Indication: Migraine prophylaxis
     Dosage: 5 YEARS
     Route: 065
  8. ZONISAMIDE [Suspect]
     Active Substance: ZONISAMIDE
     Indication: Migraine prophylaxis
     Dosage: UNK
     Route: 065
  9. ZONISAMIDE [Concomitant]
     Active Substance: ZONISAMIDE
     Indication: Migraine prophylaxis
     Dosage: UNK
     Route: 065
     Dates: start: 2017
  10. APIXABAN [Concomitant]
     Active Substance: APIXABAN
     Indication: Product used for unknown indication
     Dosage: UNK
     Route: 065
  11. PANTOPRAZOLE [Concomitant]
     Active Substance: PANTOPRAZOLE
     Indication: Product used for unknown indication
     Dosage: UNK
     Route: 065
  12. TELMISARTAN [Concomitant]
     Active Substance: TELMISARTAN
     Indication: Product used for unknown indication
     Dosage: UNK
     Route: 065
  13. ANAGRELIDE [Concomitant]
     Active Substance: ANAGRELIDE
     Indication: Product used for unknown indication
     Dosage: UNK
     Route: 065

REACTIONS (9)
  - Bradycardia [Unknown]
  - Fatigue [Unknown]
  - Dysaesthesia [Unknown]
  - Somnolence [Unknown]
  - Paraesthesia [Unknown]
  - Sedation [Unknown]
  - Vertigo [Unknown]
  - Drug ineffective [Unknown]
  - Headache [Unknown]
